FAERS Safety Report 8475721 (Version 3)
Quarter: 2013Q1

REPORT INFORMATION
  Report Type: Spontaneous
  Country: JP (occurrence: JP)
  Receive Date: 20120326
  Receipt Date: 20130221
  Transmission Date: 20140127
  Serious: Yes (Other)
  Sender: FDA-Public Use
  Company Number: PHHY2012JP025113

PATIENT
  Age: 10 Year
  Sex: Female

DRUGS (2)
  1. ZOLEDRONIC ACID [Suspect]
     Indication: OSTEOCHONDROSIS
     Dosage: 2 MG, PER MONTH
     Route: 042
     Dates: start: 201005, end: 201011
  2. MOBIC [Suspect]
     Indication: OSTEOCHONDROSIS
     Dosage: UNK UKN, UNK
     Dates: start: 201005

REACTIONS (5)
  - Langerhans^ cell histiocytosis [Unknown]
  - Bone density increased [Not Recovered/Not Resolved]
  - Tenderness [Unknown]
  - Gait disturbance [Unknown]
  - Arthralgia [Recovered/Resolved]
